FAERS Safety Report 4583631-8 (Version None)
Quarter: 2005Q1

REPORT INFORMATION
  Report Type: 
  Country: None (occurrence: None)
  Receive Date: 20050211
  Receipt Date: 20050131
  Transmission Date: 20050727
  Serious: Yes (Hospitalization, Other)
  Sender: FDA-Public Use
  Company Number: HQWYE636822NOV04

PATIENT
  Age: 66 Year
  Sex: Male
  Weight: 83.99 kg

DRUGS (17)
  1. RAPAMUNE [Suspect]
     Indication: PROPHYLAXIS AGAINST TRANSPLANT REJECTION
     Dosage: SEE IMAGE, ORAL
     Route: 048
     Dates: start: 20040128, end: 20041101
  2. RAPAMUNE [Suspect]
     Indication: PROPHYLAXIS AGAINST TRANSPLANT REJECTION
     Dosage: SEE IMAGE, ORAL
     Route: 048
     Dates: start: 20041101
  3. ARANESP [Concomitant]
  4. AVAPRO [Concomitant]
  5. CARDIZEM CD [Concomitant]
  6. CLONIDINE [Concomitant]
  7. COUMADIN [Concomitant]
  8. DARVOCET-N (DEXTROPROPHYPHENE/PARACETAMOL) [Concomitant]
  9. FLOMAX [Concomitant]
  10. GLUCOTROL XL [Concomitant]
  11. LASIX [Concomitant]
  12. LIPITOR [Concomitant]
  13. MAGNESIUM OXIDE (MAGNESIUM OXIDE) [Concomitant]
  14. OS-CAL + D (CALCIUM CARBONATE/COLECALCIFEROL) [Concomitant]
  15. PREDNISONE TAB [Concomitant]
  16. PROGRAF [Concomitant]
  17. SODIUM BICARBONATE IN PLASTIC CONTAINER [Concomitant]

REACTIONS (8)
  - ANAEMIA [None]
  - ASTHENIA [None]
  - BLOOD POTASSIUM INCREASED [None]
  - FATIGUE [None]
  - GASTRITIS EROSIVE [None]
  - GASTROINTESTINAL HAEMORRHAGE [None]
  - HELICOBACTER INFECTION [None]
  - IMMUNOSUPPRESSION [None]
